FAERS Safety Report 10257259 (Version 1)
Quarter: 2014Q2

REPORT INFORMATION
  Report Type: Spontaneous
  Country: US (occurrence: None)
  Receive Date: 20140620
  Receipt Date: 20140620
  Transmission Date: 20141212
  Serious: Yes (Other)
  Sender: FDA-Public Use
  Company Number: 1713747-2014-99989

PATIENT
  Age: 61 Year
  Sex: Male

DRUGS (1)
  1. STAY SAFE [Suspect]
     Indication: RENAL FAILURE CHRONIC
     Route: 033

REACTIONS (3)
  - Staphylococcal infection [None]
  - Peritoneal cloudy effluent [None]
  - Peritonitis [None]
